FAERS Safety Report 7224389-3 (Version None)
Quarter: 2011Q1

REPORT INFORMATION
  Report Type: 
  Country: None (occurrence: None)
  Receive Date: 20110113
  Receipt Date: 20110110
  Transmission Date: 20110831
  Serious: Yes (Hospitalization)
  Sender: FDA-Public Use
  Company Number: US-B.I. PHARMACEUTICALS,INC./RIDGEFIELD-2011-BP-00657BP

PATIENT
  Sex: Female

DRUGS (10)
  1. MULTAQ [Concomitant]
     Indication: ATRIAL FIBRILLATION
  2. LISINOPRIL [Concomitant]
     Indication: HYPERTENSION
  3. HYDROCHLOROTHIAZIDE [Concomitant]
     Indication: HYPERTENSION
     Dosage: 25 MG
  4. LORAZEPAM [Concomitant]
     Indication: ANXIETY
     Route: 048
  5. LOVASTATIN [Concomitant]
     Indication: HYPERTENSION
     Dosage: 40 MG
  6. PRADAXA [Suspect]
     Indication: ATRIAL FIBRILLATION
     Dosage: 300 MG
     Route: 048
     Dates: start: 20101201
  7. FOLIC ACID [Concomitant]
     Indication: ANAEMIA
  8. TRAZODONE [Concomitant]
     Indication: INSOMNIA
  9. CARVEDILOL [Concomitant]
     Indication: BLOOD PRESSURE
  10. MULTAQ [Concomitant]
     Indication: ARRHYTHMIA
     Dosage: 400 MG
     Route: 048

REACTIONS (2)
  - OEDEMA PERIPHERAL [None]
  - CELLULITIS [None]
